FAERS Safety Report 15727586 (Version 1)
Quarter: 2018Q4

REPORT INFORMATION
  Report Type: Spontaneous
  Country: US (occurrence: US)
  Receive Date: 20181217
  Receipt Date: 20181217
  Transmission Date: 20190205
  Serious: No
  Sender: FDA-Public Use
  Company Number: US-NOVEN PHARMACEUTICALS, INC.-US2017001467

PATIENT

DRUGS (1)
  1. MINIVELLE [Suspect]
     Active Substance: ESTRADIOL
     Indication: HORMONE REPLACEMENT THERAPY
     Dosage: 0.0375 MG, UNKNOWN
     Route: 062

REACTIONS (5)
  - Product quality issue [Recovered/Resolved]
  - Wrong technique in product usage process [Recovered/Resolved]
  - Heart rate increased [Not Recovered/Not Resolved]
  - Product dose omission [Recovered/Resolved]
  - Product adhesion issue [Recovered/Resolved]
